FAERS Safety Report 7723155-X (Version None)
Quarter: 2011Q3

REPORT INFORMATION
  Report Type: 
  Country: None (occurrence: None)
  Receive Date: 20110901
  Receipt Date: 20110824
  Transmission Date: 20111222
  Serious: Yes (Hospitalization)
  Sender: FDA-Public Use
  Company Number: US-ASTELLAS-2011US004409

PATIENT
  Sex: Female

DRUGS (2)
  1. ERLOTINIB HYDROCHLORIDE [Suspect]
     Indication: LUNG CARCINOMA CELL TYPE UNSPECIFIED STAGE 0
     Dosage: 150 MG, UID/QD
     Route: 048
     Dates: start: 20110722
  2. ERLOTINIB HYDROCHLORIDE [Suspect]
     Dosage: 150 MG, UID/QD
     Route: 048

REACTIONS (11)
  - NAUSEA [None]
  - DIARRHOEA [None]
  - VOMITING [None]
  - FATIGUE [None]
  - PLEURAL EFFUSION [None]
  - BACK PAIN [None]
  - RASH [None]
  - DECREASED APPETITE [None]
  - PULMONARY EMBOLISM [None]
  - NASAL DRYNESS [None]
  - DYSPNOEA [None]
